FAERS Safety Report 5875220-X (Version None)
Quarter: 2008Q3

REPORT INFORMATION
  Report Type: 
  Country: None (occurrence: None)
  Receive Date: 20080909
  Receipt Date: 20080829
  Transmission Date: 20090109
  Serious: Yes (Hospitalization, Other)
  Sender: FDA-Public Use
  Company Number: US-BAXTER-2008BH007745

PATIENT
  Age: 72 Year
  Sex: Female
  Weight: 81 kg

DRUGS (9)
  1. DIANEAL [Suspect]
     Indication: PERITONEAL DIALYSIS
     Route: 033
     Dates: start: 20070117
  2. EXTRANEAL [Suspect]
     Indication: PERITONEAL DIALYSIS
     Dosage: DOSE UNIT:UNKNOWN
     Route: 033
     Dates: start: 20070117
  3. HUMULIN R [Concomitant]
     Indication: DRUG USE FOR UNKNOWN INDICATION
     Dosage: DOSE UNIT:UNKNOWN
     Route: 065
  4. PHOS G [Concomitant]
     Indication: DRUG USE FOR UNKNOWN INDICATION
     Route: 065
  5. ALLOPURINOL [Concomitant]
     Indication: DRUG USE FOR UNKNOWN INDICATION
     Route: 065
  6. VITAMIN B COMPLEX CAP [Concomitant]
     Indication: DRUG USE FOR UNKNOWN INDICATION
     Dosage: DOSE UNIT:UNKNOWN
     Route: 065
  7. FISH OIL [Concomitant]
     Indication: DRUG USE FOR UNKNOWN INDICATION
     Dosage: DOSE UNIT:UNKNOWN
     Route: 065
  8. CALCITRIOL [Concomitant]
     Indication: DRUG USE FOR UNKNOWN INDICATION
     Route: 065
  9. IRON [Concomitant]
     Indication: DRUG USE FOR UNKNOWN INDICATION
     Route: 065

REACTIONS (4)
  - ACUTE CORONARY SYNDROME [None]
  - ACUTE MYOCARDIAL INFARCTION [None]
  - PERITONITIS [None]
  - VOMITING [None]
